FAERS Safety Report 10962327 (Version 4)
Quarter: 2016Q1

REPORT INFORMATION
  Report Type: Spontaneous
  Country: US (occurrence: US)
  Receive Date: 20150327
  Receipt Date: 20160330
  Transmission Date: 20160525
  Serious: No
  Sender: FDA-Public Use
  Company Number: US-PFIZER INC-2015102616

PATIENT
  Age: 64 Year
  Sex: Female
  Weight: 91 kg

DRUGS (29)
  1. TEGRETOL [Concomitant]
     Active Substance: CARBAMAZEPINE
     Dosage: 200 MG, 1X/DAY (AT BEDTIME )
  2. BIOTIN [Concomitant]
     Active Substance: BIOTIN
     Dosage: 1000 MG, 2X/DAY
  3. ATERAX [Concomitant]
     Active Substance: HYDROXYZINE HYDROCHLORIDE
     Indication: URTICARIA
     Dosage: 25 MG, AS NEEDED
  4. ONDANSETRON [Concomitant]
     Active Substance: ONDANSETRON
     Indication: NAUSEA
     Dosage: 8 MG, AS NEEDED
  5. BUMETANIDE. [Concomitant]
     Active Substance: BUMETANIDE
     Indication: OEDEMA
     Dosage: 2 MG, DAILY
  6. BUMETANIDE. [Concomitant]
     Active Substance: BUMETANIDE
     Dosage: 2 MG, 2X/DAY
  7. HUMULIN R [Concomitant]
     Active Substance: INSULIN HUMAN
     Indication: DIABETES MELLITUS
     Dosage: SLIDING SCALE UP TO 4X/DAILY STARTING AT 6 UNITS
  8. NEURONTIN [Concomitant]
     Active Substance: GABAPENTIN
     Indication: NEURALGIA
     Dosage: 1800 MG, 3X/DAY
  9. NITROQUICK [Concomitant]
     Active Substance: NITROGLYCERIN
     Indication: CHEST PAIN
     Dosage: 0.4 MG, AS NEEDED
  10. FLUOCINONIDE USP [Concomitant]
     Indication: ULCER
     Dosage: 0.05 %, 2X/DAY
  11. VOLTAREN [Concomitant]
     Active Substance: DICLOFENAC SODIUM
     Dosage: 100 G, 1% 100 GM GEL AS NEEDED
     Route: 061
  12. LYRICA [Suspect]
     Active Substance: PREGABALIN
     Indication: FIBROMYALGIA
     Dosage: 150 MG, 3X/DAY (50 MG, 3 TABLETS THREE TIMES A DAY 90 DAYS)
     Route: 048
     Dates: start: 2012
  13. LYRICA [Suspect]
     Active Substance: PREGABALIN
     Indication: DIABETIC NEUROPATHY
  14. GABAPENTIN. [Concomitant]
     Active Substance: GABAPENTIN
     Dosage: 600 MG, 3X/DAY
  15. NEXIUM [Concomitant]
     Active Substance: ESOMEPRAZOLE MAGNESIUM
     Indication: GASTROOESOPHAGEAL REFLUX DISEASE
     Dosage: 40 MG, 2X/DAY
  16. STOOL SOFTENER [Concomitant]
     Active Substance: DOCUSATE CALCIUM
     Dosage: UNK UNK, 2X/DAY
  17. RED YEAST RICE [Concomitant]
     Active Substance: DIETARY SUPPLEMENT
     Dosage: 1200 MG, 2X/DAY
  18. OXYCONTIN [Concomitant]
     Active Substance: OXYCODONE HYDROCHLORIDE
     Indication: PAIN
     Dosage: 10 MG, 3X/DAY
  19. GABAPENTIN. [Concomitant]
     Active Substance: GABAPENTIN
     Dosage: 1800 MG, 3X/DAY
     Route: 048
  20. OXYCONTIN [Concomitant]
     Active Substance: OXYCODONE HYDROCHLORIDE
     Dosage: 20 MG AT BEDTIME, 10 MG BREAKFAST AND LUNCH
  21. COZAAR [Concomitant]
     Active Substance: LOSARTAN POTASSIUM
     Indication: HYPERTENSION
     Dosage: 50 MG, DAILY
  22. HUMULIN N [Concomitant]
     Active Substance: INSULIN HUMAN
     Indication: DIABETES MELLITUS
     Dosage: UNK, 2X/DAY
  23. TIZANIDINE. [Concomitant]
     Active Substance: TIZANIDINE
     Indication: MUSCLE SPASMS
     Dosage: 4 MG, 3X/DAY
  24. ASPIRIN ^COX^ [Concomitant]
     Indication: SURGERY
     Dosage: 81 MG, DAILY
  25. VALIUM [Concomitant]
     Active Substance: DIAZEPAM
     Indication: MUSCLE SPASMS
     Dosage: 5 MG, AS NEEDED
  26. CINNAMON. [Concomitant]
     Active Substance: CINNAMON
     Dosage: 1000 MG, 2X/DAY
  27. OCUVITE [Concomitant]
     Active Substance: VITAMINS
     Dosage: UNK UNK, 2X/DAY
  28. TIZANIDINE. [Concomitant]
     Active Substance: TIZANIDINE
     Dosage: UNK, 2X/DAY(4 MG TABS 8 MG @BEDTIME AND 4 MG IN THE MORNING)
  29. ZOVIRAX [Concomitant]
     Active Substance: ACYCLOVIR
     Indication: ORAL HERPES
     Dosage: 5 %, AS NEEDED

REACTIONS (1)
  - Blood creatine phosphokinase increased [Unknown]
